FAERS Safety Report 21421538 (Version 1)
Quarter: 2022Q4

REPORT INFORMATION
  Report Type: Spontaneous
  Country: PT (occurrence: PT)
  Receive Date: 20221007
  Receipt Date: 20221007
  Transmission Date: 20230112
  Serious: Yes (Other)
  Sender: FDA-Public Use
  Company Number: PT-BAXTER-2022BAX021145

PATIENT
  Age: 55 Year
  Sex: Female

DRUGS (7)
  1. DOXORUBICIN [Suspect]
     Active Substance: DOXORUBICIN
     Indication: Serous cystadenocarcinoma ovary
     Dosage: (PEGYLATED LIPOSOMAL DOXORUBICIN); 30 MG/M2
     Route: 065
  2. GEMCITABINE [Concomitant]
     Active Substance: GEMCITABINE
     Indication: Serous cystadenocarcinoma ovary
     Dosage: SIX 3-WEEK CYCLES OF GEMCITABINE 800 MG/M2 ON DAYS 1 AND 8
     Route: 065
  3. CARBOPLATIN [Concomitant]
     Active Substance: CARBOPLATIN
     Indication: Serous cystadenocarcinoma ovary
     Dosage: CARBOPLATIN AUC 5 ON DAY 1 IN COMBINATION WITH BEVACIZUMAB 15 MG/KG BODY WEIGHT
     Route: 065
  4. CARBOPLATIN [Concomitant]
     Active Substance: CARBOPLATIN
     Dosage: 3-WEEK CYCLES OF CARBOPLATIN AUC 6
     Route: 065
  5. PACLITAXEL [Concomitant]
     Active Substance: PACLITAXEL
     Indication: Serous cystadenocarcinoma ovary
     Dosage: 3-WEEK CYCLES; 175 MG/M2
     Route: 065
  6. TRABECTEDIN [Concomitant]
     Active Substance: TRABECTEDIN
     Indication: Serous cystadenocarcinoma ovary
     Dosage: 3-WEEK; 1.1 MG/M2
     Route: 065
  7. BEVACIZUMAB [Concomitant]
     Active Substance: BEVACIZUMAB
     Indication: Serous cystadenocarcinoma ovary
     Dosage: CARBOPLATIN AUC 5 ON DAY 1 IN COMBINATION WITH BEVACIZUMAB 15 MG/KG BODY WEIGHT
     Route: 065

REACTIONS (2)
  - Neutropenia [Unknown]
  - Cholestasis [Unknown]
